FAERS Safety Report 4804854-6 (Version None)
Quarter: 2005Q4

REPORT INFORMATION
  Report Type: 
  Country: None (occurrence: None)
  Receive Date: 20051017
  Receipt Date: 20050930
  Transmission Date: 20060501
  Serious: Yes (Other)
  Sender: FDA-Public Use
  Company Number: 12602

PATIENT
  Age: 92 Year
  Sex: 0

DRUGS (1)
  1. DILTIAZEM [Suspect]

REACTIONS (3)
  - DRUG ADMINISTRATION ERROR [None]
  - DRUG TOXICITY [None]
  - OVERDOSE [None]
